FAERS Safety Report 10299146 (Version 1)
Quarter: 2014Q3

REPORT INFORMATION
  Report Type: Spontaneous
  Country: JP (occurrence: JP)
  Receive Date: 20140711
  Receipt Date: 20140711
  Transmission Date: 20150326
  Serious: Yes (Other)
  Sender: FDA-Public Use
  Company Number: JP-BRISTOL-MYERS SQUIBB COMPANY-21184940

PATIENT

DRUGS (1)
  1. VEPESID [Suspect]
     Active Substance: ETOPOSIDE
     Route: 042

REACTIONS (1)
  - Vasculitis [Unknown]
